FAERS Safety Report 25130670 (Version 1)
Quarter: 2025Q1

REPORT INFORMATION
  Report Type: Spontaneous
  Country: US (occurrence: US)
  Receive Date: 20250327
  Receipt Date: 20250327
  Transmission Date: 20250408
  Serious: No
  Sender: RECORDATI
  Company Number: US-RECORDATI RARE DISEASE INC.-2011000008

PATIENT

DRUGS (7)
  1. CARBAGLU [Suspect]
     Active Substance: CARGLUMIC ACID
     Indication: Hyperammonaemia
     Dosage: 1 (EVERYDAY)
     Dates: start: 20110719
  2. CARBAGLU [Suspect]
     Active Substance: CARGLUMIC ACID
     Indication: Off label use
     Dosage: 1800 MG, BID
  3. CARBAGLU [Suspect]
     Active Substance: CARGLUMIC ACID
     Dosage: 1000 MG, BID
  4. PROPRANOLOL [Concomitant]
     Active Substance: PROPRANOLOL HYDROCHLORIDE
     Indication: Product used for unknown indication
     Dates: start: 20110705
  5. CARNITINE [Concomitant]
     Active Substance: CARNITINE
     Indication: Acidosis
     Dates: start: 20070508
  6. FERROUS SULPHATE                   /00023503/ [Concomitant]
     Indication: Anaemia
     Dates: start: 20070508
  7. ZANTAC [Concomitant]
     Active Substance: RANITIDINE HYDROCHLORIDE
     Indication: Vomiting
     Dates: start: 20070829

REACTIONS (2)
  - Diarrhoea [Recovering/Resolving]
  - Off label use [Recovered/Resolved]

NARRATIVE: CASE EVENT DATE: 20110719
